FAERS Safety Report 4491309-4 (Version None)
Quarter: 2004Q4

REPORT INFORMATION
  Report Type: 
  Country: None (occurrence: None)
  Receive Date: 20041101
  Receipt Date: 20041101
  Transmission Date: 20050328
  Serious: Yes (Life-Threatening)
  Sender: FDA-Public Use
  Company Number: None

PATIENT
  Sex: Female
  Weight: 56.6996 kg

DRUGS (4)
  1. TAMOXIFEN   20MG [Suspect]
     Indication: BREAST CANCER
     Dosage: 20 MG   AT BEDTIME   ORAL
     Route: 048
     Dates: start: 20030913, end: 20041024
  2. PRILOSEC [Concomitant]
  3. GLUCOSAMINE [Concomitant]
  4. DARVOCET [Concomitant]

REACTIONS (6)
  - DEEP VEIN THROMBOSIS [None]
  - HYPERCOAGULATION [None]
  - NERVE COMPRESSION [None]
  - NEURILEMMOMA [None]
  - PAIN IN EXTREMITY [None]
  - PERIPHERAL COLDNESS [None]
